FAERS Safety Report 10506635 (Version 4)
Quarter: 2014Q4

REPORT INFORMATION
  Report Type: Spontaneous
  Country: US (occurrence: US)
  Receive Date: 20141009
  Receipt Date: 20141117
  Transmission Date: 20150528
  Serious: Yes (Hospitalization)
  Sender: FDA-Public Use
  Company Number: US-009507513-1409USA014892

PATIENT
  Sex: Female

DRUGS (1)
  1. PEGINTRON [Suspect]
     Active Substance: PEGINTERFERON ALFA-2B
     Indication: HEPATITIS C
     Dosage: UNK
     Dates: start: 20140920

REACTIONS (7)
  - Drug dose omission [Unknown]
  - Product quality issue [Unknown]
  - Joint swelling [Unknown]
  - Joint stiffness [Unknown]
  - Wrong technique in drug usage process [Unknown]
  - Affective disorder [Unknown]
  - Injection site bruising [Unknown]

NARRATIVE: CASE EVENT DATE: 2014
